FAERS Safety Report 9911583 (Version 1)
Quarter: 2014Q1

REPORT INFORMATION
  Report Type: Spontaneous
  Country: US (occurrence: US)
  Receive Date: 20140219
  Receipt Date: 20140219
  Transmission Date: 20141002
  Serious: Yes (Other)
  Sender: FDA-Public Use
  Company Number: PHEH2014US003016

PATIENT
  Sex: Male

DRUGS (3)
  1. TEKTURNA [Suspect]
  2. LOSARTAN [Concomitant]
  3. THIAZIDE [Concomitant]

REACTIONS (8)
  - Renal failure chronic [Unknown]
  - Hypertension [Unknown]
  - Diabetes mellitus [Unknown]
  - Visual acuity reduced [Unknown]
  - Oedema peripheral [Unknown]
  - Renal failure acute [Unknown]
  - Metabolic acidosis [Unknown]
  - Hyperphosphataemia [Unknown]
